FAERS Safety Report 11723184 (Version 1)
Quarter: 2015Q4

REPORT INFORMATION
  Report Type: Spontaneous
  Country: US (occurrence: None)
  Receive Date: 20151111
  Receipt Date: 20151111
  Transmission Date: 20160304
  Serious: Yes (Life-Threatening, Hospitalization, Other)
  Sender: FDA-Public Use
  Company Number: US-MDT-ADR-2015-02119

PATIENT
  Age: 42 Year
  Sex: Male

DRUGS (2)
  1. HYDROCODONE BITARTRATE AND ACETAMINOPHEN [Suspect]
     Active Substance: ACETAMINOPHEN\HYDROCODONE BITARTRATE
  2. BACLOFEN (ORAL) [Suspect]
     Active Substance: BACLOFEN

REACTIONS (5)
  - Overdose [None]
  - Coma [None]
  - Electroencephalogram abnormal [None]
  - Pupil fixed [None]
  - Generalised tonic-clonic seizure [None]
